FAERS Safety Report 4728715-6 (Version None)
Quarter: 2005Q3

REPORT INFORMATION
  Report Type: 
  Country: None (occurrence: None)
  Receive Date: 20050727
  Receipt Date: 20050720
  Transmission Date: 20060218
  Serious: Yes (Life-Threatening, Hospitalization, Other)
  Sender: FDA-Public Use
  Company Number: USA-2005-0020793

PATIENT
  Age: 58 Year
  Sex: Female

DRUGS (7)
  1. OXYCONTIN [Suspect]
     Indication: PAIN
     Dosage: 40 MG, Q6H, ORAL
     Route: 048
  2. SYNTHROID [Concomitant]
  3. ROXICODONE [Concomitant]
  4. LASIX [Concomitant]
  5. POTASSIUM CHLORIDE [Concomitant]
  6. VITAMINS [Concomitant]
  7. ASPIRIN [Concomitant]

REACTIONS (12)
  - CARDIAC FAILURE CONGESTIVE [None]
  - DEPENDENCE [None]
  - DRUG EFFECT DECREASED [None]
  - DRUG WITHDRAWAL SYNDROME [None]
  - INAPPROPRIATE SCHEDULE OF DRUG ADMINISTRATION [None]
  - INCORRECT DOSE ADMINISTERED [None]
  - INFLUENZA LIKE ILLNESS [None]
  - INTENTIONAL MISUSE [None]
  - PAIN [None]
  - PNEUMONIA [None]
  - THERAPY NON-RESPONDER [None]
  - THYROID DISORDER [None]
